FAERS Safety Report 7873088-3 (Version None)
Quarter: 2011Q4

REPORT INFORMATION
  Report Type: 
  Country: None (occurrence: None)
  Receive Date: 20111027
  Receipt Date: 20111013
  Transmission Date: 20120403
  Serious: Yes (Death, Hospitalization)
  Sender: FDA-Public Use
  Company Number: 1000024878

PATIENT
  Age: 76 Year
  Sex: Male

DRUGS (7)
  1. METRONIDAZOLE [Suspect]
     Indication: BACTERIAL INFECTION
     Dosage: 400 MG,ORAL
     Route: 048
     Dates: start: 20090522
  2. RIFADIN [Suspect]
     Indication: BACTERIAL INFECTION
     Dosage: 600 MG (300 MG, 2 IN 1 D),ORAL
     Route: 048
     Dates: start: 20090522, end: 20090527
  3. FUSIDIC ACID [Suspect]
     Indication: BACTERIAL INFECTION
     Dosage: 500 MG (250 MG, 2 IN 1 D),ORAL
     Route: 048
     Dates: start: 20090522
  4. LEXAPRO [Suspect]
     Indication: DEPRESSION
     Dosage: (15 MG),ORAL
     Route: 048
     Dates: start: 20090403
  5. NEXIUM [Suspect]
     Indication: DUODENAL ULCER
     Dosage: (40 MG)
     Dates: start: 20090403
  6. SEROQUEL [Suspect]
     Indication: PSYCHOTIC DISORDER
     Dosage: (25 MG)
     Dates: start: 20090403
  7. AUGMENTIN [Suspect]
     Indication: BACTERIAL INFECTION
     Dosage: ORAL
     Route: 048
     Dates: start: 20090527

REACTIONS (10)
  - ESCHERICHIA INFECTION [None]
  - CARDIAC FAILURE [None]
  - CONFUSIONAL STATE [None]
  - STAPHYLOCOCCAL INFECTION [None]
  - AGITATION [None]
  - SKIN ULCER [None]
  - BACTERIAL INFECTION [None]
  - HEPATITIS [None]
  - ACUTE HEPATIC FAILURE [None]
  - DEHYDRATION [None]
